FAERS Safety Report 5282841-4 (Version None)
Quarter: 2007Q1

REPORT INFORMATION
  Report Type: 
  Country: None (occurrence: None)
  Receive Date: 20070329
  Receipt Date: 20070329
  Transmission Date: 20070707
  Serious: Yes (Hospitalization)
  Sender: FDA-Public Use
  Company Number: None

PATIENT
  Age: 81 Year
  Sex: Male
  Weight: 73.9363 kg

DRUGS (24)
  1. ENOXAPARIN SODIUM [Suspect]
     Indication: THROMBOSIS PROPHYLAXIS
     Dosage: 30 MG DAILY SQ
     Route: 058
     Dates: start: 20070228, end: 20070311
  2. LINEZOLID [Suspect]
     Indication: UROSEPSIS
     Dosage: 600 MG DAILY IV
     Route: 042
     Dates: start: 20070203, end: 20070310
  3. CAPSOFUNGIN [Concomitant]
  4. PRIMAXIN [Concomitant]
  5. ACETAMINOPHEN [Concomitant]
  6. ALBUTEROL [Concomitant]
  7. CASPOFUNGIN [Concomitant]
  8. CASTOR OIL [Concomitant]
  9. ENOXAPARIN SODIUM [Concomitant]
  10. FENTANYL [Concomitant]
  11. IPRATROPIUM SOLN [Concomitant]
  12. LEVOTHYROXINE SODIUM [Concomitant]
  13. LINEZOLID [Concomitant]
  14. LORAZEPAM [Concomitant]
  15. MEGESTROL ACETATE [Concomitant]
  16. METRONIDAZOLE [Concomitant]
  17. MICONAZOLE [Concomitant]
  18. M.V.I. [Concomitant]
  19. NOREPINEPHRINE BITARTRATE [Concomitant]
  20. POTASSIUM CHLORIDE [Concomitant]
  21. RANITIDINE [Concomitant]
  22. SODIUM BICARB [Concomitant]
  23. HYDROCORTISONE [Concomitant]
  24. IMIPENEM/CILASTATIN [Concomitant]

REACTIONS (1)
  - THROMBOCYTOPENIA [None]
